FAERS Safety Report 9686790 (Version 3)
Quarter: 2013Q4

REPORT INFORMATION
  Report Type: Report from Study
  Country: BR (occurrence: BR)
  Receive Date: 20131113
  Receipt Date: 20131125
  Transmission Date: 20140711
  Serious: Yes (Death, Hospitalization, Other)
  Sender: FDA-Public Use
  Company Number: PHHY2013BR099154

PATIENT
  Age: 57 Year
  Sex: Female

DRUGS (3)
  1. GALVUS MET [Suspect]
     Indication: DIABETES MELLITUS
     Dosage: 1 DF (850 MGMET AND 50 MG VILDA), UKN
  2. DIOVAN AMLO FIX [Suspect]
     Indication: HYPERTENSION
     Dosage: 2 DF (320 MG VALS AND 5 MG AMLO), DAILY
     Route: 048
  3. DIOVAN [Suspect]
     Indication: HYPERTENSION
     Dosage: 2 DF (VALS 160 MG), DAILY
     Route: 048

REACTIONS (6)
  - Infection [Fatal]
  - Cardiac failure [Fatal]
  - Diabetes mellitus [Recovering/Resolving]
  - Hyperglycaemia [Not Recovered/Not Resolved]
  - Hypertension [Recovering/Resolving]
  - Drug intolerance [Unknown]
